FAERS Safety Report 16482598 (Version 10)
Quarter: 2020Q4

REPORT INFORMATION
  Report Type: Report from Study
  Country: JP (occurrence: JP)
  Receive Date: 20190627
  Receipt Date: 20201211
  Transmission Date: 20210113
  Serious: Yes (Death, Hospitalization, Other)
  Sender: FDA-Public Use
  Company Number: JP-ASTELLAS-2019JP009761

PATIENT
  Age: 72 Year
  Sex: Male
  Weight: 64 kg

DRUGS (12)
  1. ASP2215 [Suspect]
     Active Substance: GILTERITINIB
     Route: 048
     Dates: start: 20190625, end: 20190902
  2. HYDREA [Concomitant]
     Active Substance: HYDROXYUREA
     Dosage: 1500 MG/DAY, UNKNOWN FREQ.
     Route: 048
     Dates: start: 20190629, end: 20190705
  3. HYDREA [Concomitant]
     Active Substance: HYDROXYUREA
     Dosage: 1000 MG/DAY, UNKNOWN FREQ.
     Route: 048
     Dates: start: 20190725, end: 20190725
  4. HYDREA [Concomitant]
     Active Substance: HYDROXYUREA
     Dosage: 500 MG/DAY, UNKNOWN FREQ.
     Route: 048
     Dates: start: 20190726, end: 20190728
  5. HYDREA [Concomitant]
     Active Substance: HYDROXYUREA
     Dosage: 2000 MG/DAY, UNKNOWN FREQ.
     Route: 048
     Dates: start: 20190730, end: 20190902
  6. ASP2215 [Suspect]
     Active Substance: GILTERITINIB
     Indication: ACUTE MYELOID LEUKAEMIA RECURRENT
     Route: 048
     Dates: start: 20190512, end: 20190624
  7. HYDREA [Concomitant]
     Active Substance: HYDROXYUREA
     Indication: ACUTE MYELOID LEUKAEMIA
     Dosage: 1500 MG/DAY, UNKNOWN FREQ.
     Route: 048
     Dates: end: 20190625
  8. HYDREA [Concomitant]
     Active Substance: HYDROXYUREA
     Dosage: 1500 MG/DAY, UNKNOWN FREQ.
     Route: 048
     Dates: start: 20190729, end: 20190729
  9. MEYLON [Concomitant]
     Active Substance: SODIUM BICARBONATE
     Indication: HYPERKALAEMIA
     Dosage: UNK UNK, UNKNOWN FREQ.
     Route: 065
  10. HYDREA [Concomitant]
     Active Substance: HYDROXYUREA
     Dosage: 1000 MG/DAY, UNKNOWN FREQ.
     Route: 048
     Dates: start: 20190626, end: 20190628
  11. ARGAMATE [Concomitant]
     Active Substance: CALCIUM POLYSTYRENE SULFONATE
     Indication: BLOOD POTASSIUM INCREASED
     Dosage: UNK UNK, UNKNOWN FREQ.
     Route: 065
     Dates: start: 201905
  12. HYDREA [Concomitant]
     Active Substance: HYDROXYUREA
     Dosage: 2000 MG/DAY, UNKNOWN FREQ.
     Route: 048
     Dates: start: 20190706, end: 20190724

REACTIONS (8)
  - Myeloblast count increased [Recovering/Resolving]
  - Febrile neutropenia [Not Recovered/Not Resolved]
  - Hyperkalaemia [Recovered/Resolved]
  - Infection [Fatal]
  - Pyrexia [Recovered/Resolved]
  - Lymphoblast count increased [Recovering/Resolving]
  - Tumour lysis syndrome [Recovered/Resolved]
  - Disseminated intravascular coagulation [Recovered/Resolved]

NARRATIVE: CASE EVENT DATE: 20190513
